FAERS Safety Report 13626030 (Version 1)
Quarter: 2017Q2

REPORT INFORMATION
  Report Type: Spontaneous
  Country: US (occurrence: US)
  Receive Date: 20170607
  Receipt Date: 20170607
  Transmission Date: 20170830
  Serious: Yes (Life-Threatening, Hospitalization)
  Sender: FDA-Public Use
  Company Number: None

PATIENT
  Age: 67 Year
  Sex: Male
  Weight: 97.61 kg

DRUGS (2)
  1. ATIVAN [Suspect]
     Active Substance: LORAZEPAM
  2. MORPHINE [Suspect]
     Active Substance: MORPHINE

REACTIONS (2)
  - Respiratory failure [None]
  - Unresponsive to stimuli [None]

NARRATIVE: CASE EVENT DATE: 20170505
